FAERS Safety Report 16889713 (Version 3)
Quarter: 2019Q4

REPORT INFORMATION
  Report Type: Spontaneous
  Country: DE (occurrence: DE)
  Receive Date: 20191007
  Receipt Date: 20191211
  Transmission Date: 20200122
  Serious: Yes (Hospitalization)
  Sender: FDA-Public Use
  Company Number: DE-TORRENT-00015638

PATIENT
  Age: 16 Year
  Sex: Female
  Weight: 56 kg

DRUGS (3)
  1. PETNIDAN [Suspect]
     Active Substance: ETHOSUXIMIDE
     Indication: EPILEPSY
     Dosage: DAILY DOSE: 500 MG QD
     Route: 048
     Dates: start: 20190605
  2. LEVETIRACETAM. [Suspect]
     Active Substance: LEVETIRACETAM
     Indication: EPILEPSY
     Dosage: 2400 MG QD
     Route: 048
     Dates: start: 20190605
  3. ORFIRIL LONG [Concomitant]
     Active Substance: VALPROIC ACID
     Indication: EPILEPSY
     Dosage: DAILY DOSE: 600 MG EVERY DAYS 2 SEPARATED DOSES
     Route: 048

REACTIONS (3)
  - Dizziness [Unknown]
  - Extrasystoles [Unknown]
  - Headache [Unknown]

NARRATIVE: CASE EVENT DATE: 20190605
